FAERS Safety Report 7623728-9 (Version None)
Quarter: 2011Q3

REPORT INFORMATION
  Report Type: 
  Country: None (occurrence: None)
  Receive Date: 20110720
  Receipt Date: 20110713
  Transmission Date: 20111222
  Serious: Yes (Other)
  Sender: FDA-Public Use
  Company Number: US-GLAXOSMITHKLINE-A0936677A

PATIENT
  Sex: Male

DRUGS (1)
  1. PAROXETINE HCL [Suspect]
     Route: 065
     Dates: end: 20110709

REACTIONS (5)
  - SUICIDAL IDEATION [None]
  - WITHDRAWAL SYNDROME [None]
  - VIOLENCE-RELATED SYMPTOM [None]
  - STRESS [None]
  - TREATMENT NONCOMPLIANCE [None]
